FAERS Safety Report 20652184 (Version 1)
Quarter: 2022Q1

REPORT INFORMATION
  Report Type: Spontaneous
  Country: US (occurrence: US)
  Receive Date: 20220330
  Receipt Date: 20220330
  Transmission Date: 20220423
  Serious: Yes (Death, Hospitalization, Other)
  Sender: FDA-Public Use
  Company Number: US-AMGEN-USASP2022051757

PATIENT

DRUGS (6)
  1. PANITUMUMAB [Suspect]
     Active Substance: PANITUMUMAB
     Indication: Colorectal cancer metastatic
     Dosage: UNK
     Route: 065
  2. BEVACIZUMAB [Suspect]
     Active Substance: BEVACIZUMAB
     Indication: Colorectal cancer
     Dosage: UNK
     Route: 065
  3. BEVACIZUMAB [Suspect]
     Active Substance: BEVACIZUMAB
     Indication: Metastases to liver
  4. FLOXURIDINE [Concomitant]
     Active Substance: FLOXURIDINE
     Dosage: 0.12 MILLIGRAM/KILOGRAM, QD
     Route: 065
  5. DEXAMETHASONE [Concomitant]
     Active Substance: DEXAMETHASONE
     Dosage: 28 DAY CYCLE
     Route: 065
  6. FLUOROURACIL\IRINOTECAN\LEUCOVORIN [Concomitant]
     Active Substance: FLUOROURACIL\IRINOTECAN\LEUCOVORIN
     Dosage: UNK
     Route: 065

REACTIONS (7)
  - Death [Fatal]
  - Device related infection [Unknown]
  - Bile duct stenosis [Unknown]
  - Biloma [Unknown]
  - Colorectal cancer metastatic [Unknown]
  - Procedural shock [Recovered/Resolved]
  - Procedural complication [Unknown]
